FAERS Safety Report 5008500-0 (Version None)
Quarter: 2006Q2

REPORT INFORMATION
  Report Type: 
  Country: None (occurrence: None)
  Receive Date: 20060522
  Receipt Date: 20060522
  Transmission Date: 20061013
  Serious: Yes (Life-Threatening, Hospitalization, Other)
  Sender: FDA-Public Use
  Company Number: None

PATIENT
  Age: 16 Year
  Sex: Female
  Weight: 50.8029 kg

DRUGS (2)
  1. WELLBUTRIN XL [Suspect]
     Indication: DEPRESSION
     Dosage: 300 MG PILL ONCE A DAY PO
     Route: 048
     Dates: start: 20060313, end: 20060428
  2. WELLBUTRIN XL [Concomitant]

REACTIONS (2)
  - GRAND MAL CONVULSION [None]
  - MEMORY IMPAIRMENT [None]
